FAERS Safety Report 5850500-2 (Version None)
Quarter: 2008Q3

REPORT INFORMATION
  Report Type: 
  Country: None (occurrence: None)
  Receive Date: 20080819
  Receipt Date: 20080807
  Transmission Date: 20090109
  Serious: Yes (Other)
  Sender: FDA-Public Use
  Company Number: AU-PFIZER INC-2008067274

PATIENT
  Age: 74 Year
  Sex: Female
  Weight: 82 kg

DRUGS (9)
  1. LYRICA [Suspect]
     Indication: MUSCLE SPASMS
     Route: 048
  2. AMLODIPINE [Concomitant]
     Indication: BLOOD PRESSURE
     Route: 048
  3. PERINDOPRIL ERBUMINE [Concomitant]
     Indication: BLOOD PRESSURE
     Route: 048
  4. FLUVOXAMINE MALEATE [Concomitant]
     Indication: DEPRESSION
     Route: 048
  5. SIMVASTATIN [Concomitant]
     Indication: BLOOD CHOLESTEROL
     Route: 048
  6. PLAVIX [Concomitant]
     Indication: ANTICOAGULANT THERAPY
     Route: 048
  7. CELEBREX [Concomitant]
     Indication: ARTHRITIS
     Route: 048
  8. SOMAC [Concomitant]
     Indication: GASTROOESOPHAGEAL REFLUX DISEASE
     Route: 048
  9. OXYCONTIN [Concomitant]
     Indication: PAIN
     Route: 048

REACTIONS (6)
  - BALANCE DISORDER [None]
  - DIZZINESS [None]
  - FEELING ABNORMAL [None]
  - IMPAIRED HEALING [None]
  - NAUSEA [None]
  - SURGERY [None]
